FAERS Safety Report 7353416-8 (Version None)
Quarter: 2011Q1

REPORT INFORMATION
  Report Type: 
  Country: None (occurrence: None)
  Receive Date: 20110304
  Receipt Date: 20110224
  Transmission Date: 20110831
  Serious: Yes (Other)
  Sender: FDA-Public Use
  Company Number: 1000019024

PATIENT
  Age: 75 Year
  Sex: Male

DRUGS (19)
  1. FUROSEMIDE [Concomitant]
  2. ATROVENT [Concomitant]
  3. NEBIVOLOL HCL [Suspect]
     Indication: HYPERTENSION
     Dosage: ORAL
     Route: 048
     Dates: start: 20100501
  4. FLONIDAN (LORATADINE) [Concomitant]
  5. SANVAL (ZOLPIDEM TARTRATE) [Concomitant]
  6. RAMIPRIL [Concomitant]
  7. ISOSORBIDE MONONITRATE [Concomitant]
  8. TINIDIL (ISOSORBIDE DINITRATE) [Concomitant]
  9. SPIRIVA [Concomitant]
  10. TEOLIN (THEOPHYLLINE) [Concomitant]
  11. PEPTORAN (RANITIDINE HYDROCHLORIDE) [Concomitant]
  12. ZALDIAR (PARACETAMOL, TRAMADOL HYDROCHLORIDE) [Concomitant]
  13. LANITOP (METILDIGOXIN) [Concomitant]
  14. SERETIDE (FLUTICASONE PROPIONATE, SALMETEROL) [Concomitant]
  15. KALINOR (CITRIC ACID, POTASSIUM BICARBONATE) [Concomitant]
  16. VENTOLIN [Concomitant]
  17. HELEX (ALPRAZOLAM) [Concomitant]
  18. CRESTOR [Concomitant]
  19. SINGULAIR [Concomitant]

REACTIONS (2)
  - DYSPNOEA [None]
  - SUFFOCATION FEELING [None]
